FAERS Safety Report 7528025-8 (Version None)
Quarter: 2011Q2

REPORT INFORMATION
  Report Type: 
  Country: None (occurrence: None)
  Receive Date: 20110531
  Receipt Date: 20110516
  Transmission Date: 20111010
  Serious: Yes (Other)
  Sender: FDA-Public Use
  Company Number: JHP201100161

PATIENT
  Age: 25 Year
  Sex: Male
  Weight: 50 kg

DRUGS (7)
  1. EPINEPHRINE [Suspect]
     Indication: LOCAL ANAESTHESIA
     Dosage: 5 ML OF 1:30000 OVER 30 SEC INTO NASAL SEPTUM, SUBCUTANEOUS
     Route: 058
  2. ONDANSETRON [Concomitant]
  3. TRAMADOL HCL [Concomitant]
  4. PROPOFOL [Suspect]
     Indication: GENERAL ANAESTHESIA
     Dosage: 30 MG, INJECTION
  5. MIDAZOLAM HYDROCHLORIDE [Concomitant]
  6. THIOPENTONE SODIUM (THIOPENTAL SODIUM) [Concomitant]
  7. VECURONIUM (VECURONIUM) [Concomitant]

REACTIONS (1)
  - HYPOTENSION [None]
